FAERS Safety Report 5191958-4 (Version None)
Quarter: 2006Q4

REPORT INFORMATION
  Report Type: 
  Country: None (occurrence: None)
  Receive Date: 20061227
  Receipt Date: 20051104
  Transmission Date: 20070319
  Serious: Yes (Hospitalization)
  Sender: FDA-Public Use
  Company Number: US-AMGEN-US156824

PATIENT
  Sex: Male

DRUGS (5)
  1. PANITUMUMAB [Suspect]
     Indication: COLORECTAL CANCER
     Route: 042
     Dates: start: 20050915
  2. AVASTIN [Concomitant]
     Route: 042
  3. OXALIPLATIN [Concomitant]
     Route: 042
  4. FLUOROURACIL [Concomitant]
     Route: 042
  5. LEUCOVORIN CALCIUM [Concomitant]
     Route: 042

REACTIONS (4)
  - DUODENITIS [None]
  - GASTROOESOPHAGEAL REFLUX DISEASE [None]
  - OESOPHAGITIS [None]
  - ULCER [None]
